FAERS Safety Report 7951854-3 (Version None)
Quarter: 2011Q4

REPORT INFORMATION
  Report Type: 
  Country: None (occurrence: None)
  Receive Date: 20111201
  Receipt Date: 20111116
  Transmission Date: 20120403
  Serious: Yes (Hospitalization, Other)
  Sender: FDA-Public Use
  Company Number: NO-ROCHE-800880

PATIENT
  Sex: Male
  Weight: 78 kg

DRUGS (10)
  1. INTERFERON ALFA [Suspect]
     Indication: ESSENTIAL THROMBOCYTHAEMIA
     Route: 058
     Dates: start: 20050228, end: 20060807
  2. INTERFERON ALFA [Suspect]
     Route: 058
  3. ANAGRELIDE HCL [Suspect]
     Indication: ESSENTIAL THROMBOCYTHAEMIA
     Route: 048
     Dates: start: 20081015
  4. INTERFERON ALFA [Suspect]
     Route: 058
  5. HYDROXYUREA [Suspect]
     Indication: ESSENTIAL THROMBOCYTHAEMIA
     Route: 048
     Dates: start: 20060829
  6. IRBESARTAN AND HYDROCHLOROTHIAZIDE [Concomitant]
     Indication: HYPERTENSION
  7. WARFARIN SODIUM [Suspect]
     Indication: ANTICOAGULANT THERAPY
     Route: 048
     Dates: start: 20080411, end: 20110601
  8. ASPIRIN [Suspect]
     Indication: ESSENTIAL THROMBOCYTHAEMIA
     Route: 048
     Dates: start: 20050203
  9. INTERFERON ALFA [Suspect]
     Route: 058
  10. ANAGRELIDE HCL [Suspect]
     Dates: start: 20061120

REACTIONS (2)
  - DRUG INTOLERANCE [None]
  - HAEMORRHAGE [None]
